FAERS Safety Report 11315629 (Version 1)
Quarter: 2015Q3

REPORT INFORMATION
  Report Type: Spontaneous
  Country: US (occurrence: US)
  Receive Date: 20150728
  Receipt Date: 20150728
  Transmission Date: 20151125
  Serious: No
  Sender: FDA-Public Use
  Company Number: US-009507513-1507USA004396

PATIENT
  Age: 65 Year
  Sex: Male

DRUGS (2)
  1. PROPECIA [Concomitant]
     Active Substance: FINASTERIDE
     Route: 048
  2. VYTORIN [Suspect]
     Active Substance: EZETIMIBE\SIMVASTATIN
     Indication: HYPERCHOLESTEROLAEMIA
     Dosage: DOSE:10/20MG; ONCE A DAY
     Route: 048
     Dates: start: 201411, end: 2015

REACTIONS (1)
  - Alopecia [Unknown]

NARRATIVE: CASE EVENT DATE: 201506
